FAERS Safety Report 6054484-6 (Version None)
Quarter: 2009Q1

REPORT INFORMATION
  Report Type: 
  Country: None (occurrence: None)
  Receive Date: 20090127
  Receipt Date: 20090115
  Transmission Date: 20090719
  Serious: Yes (Hospitalization, Other)
  Sender: FDA-Public Use
  Company Number: PHHO2008FR15102

PATIENT
  Sex: Male
  Weight: 81.6 kg

DRUGS (3)
  1. CERTICAN [Suspect]
     Indication: RENAL TRANSPLANT
     Dosage: CODE NOT BROKEN
     Route: 048
     Dates: start: 20080529
  2. MYFORTIC [Suspect]
     Indication: RENAL TRANSPLANT
     Dosage: 720 MG, DAILY
     Route: 048
     Dates: start: 20080529
  3. CORTANCYL [Concomitant]

REACTIONS (7)
  - C-REACTIVE PROTEIN INCREASED [None]
  - DIARRHOEA [None]
  - ESCHERICHIA INFECTION [None]
  - PYELONEPHRITIS ACUTE [None]
  - PYREXIA [None]
  - RENAL FAILURE ACUTE [None]
  - URETERIC OBSTRUCTION [None]
